FAERS Safety Report 8707370 (Version 2)
Quarter: 2012Q4

REPORT INFORMATION
  Report Type: 
  Country: US (occurrence: US)
  Receive Date: 20120803
  Receipt Date: 20120905
  Transmission Date: 20130627
  Serious: Yes (Hospitalization)
  Sender: FDA-Public Use
  Company Number: US-ASTRAZENECA-2012SE52523

PATIENT
  Age: 58 Year
  Sex: Male
  Weight: 72.6 kg

DRUGS (8)
  1. SEROQUEL XR [Suspect]
     Indication: BIPOLAR DISORDER
     Route: 048
     Dates: start: 20120713
  2. CELEXA [Suspect]
     Indication: DEPRESSION
     Route: 048
     Dates: start: 20111112, end: 20120709
  3. UNSPECIFIED INGREDIENT [Suspect]
     Route: 065
  4. FIORICET [Suspect]
     Indication: HEADACHE
     Route: 065
  5. METHADONE [Suspect]
     Route: 065
  6. KLONOPIN [Concomitant]
     Indication: ANXIETY
     Route: 048
     Dates: start: 20120713
  7. KLONOPIN [Concomitant]
     Indication: INSOMNIA
     Route: 048
     Dates: start: 20120713
  8. LAMICTAL [Concomitant]
     Indication: BIPOLAR DISORDER
     Route: 048
     Dates: start: 20120713

REACTIONS (3)
  - Suicidal ideation [Unknown]
  - Therapeutic response unexpected [Unknown]
  - Intentional drug misuse [Unknown]
